FAERS Safety Report 7571971-X (Version None)
Quarter: 2011Q2

REPORT INFORMATION
  Report Type: 
  Country: None (occurrence: None)
  Receive Date: 20110624
  Receipt Date: 20110616
  Transmission Date: 20111010
  Serious: Yes (Hospitalization)
  Sender: FDA-Public Use
  Company Number: US-US-EMD SERONO, INC.-7050351

PATIENT
  Sex: Female
  Weight: 75 kg

DRUGS (7)
  1. REBIF [Suspect]
     Indication: MULTIPLE SCLEROSIS
     Route: 058
     Dates: start: 20100915, end: 20101001
  2. TOPIRAMATE [Suspect]
     Indication: MIGRAINE
  3. CARDIZEM XR [Concomitant]
     Indication: MIGRAINE
  4. VITAMIN D [Concomitant]
     Indication: VITAMIN D DEFICIENCY
  5. ZONISAMIDE [Concomitant]
     Indication: CONVULSION
  6. TEGRETOL-XR [Suspect]
     Indication: CONVULSION
  7. ZONISAMIDE [Concomitant]
     Indication: MIGRAINE

REACTIONS (2)
  - MULTIPLE SCLEROSIS [None]
  - FALL [None]
